FAERS Safety Report 4720629-0 (Version None)
Quarter: 2005Q3

REPORT INFORMATION
  Report Type: 
  Country: None (occurrence: None)
  Receive Date: 20050719
  Receipt Date: 20050505
  Transmission Date: 20060218
  Serious: Yes (Other)
  Sender: FDA-Public Use
  Company Number: 2005056854

PATIENT
  Age: 53 Year
  Sex: Male

DRUGS (9)
  1. CELEBREX [Suspect]
     Indication: ILL-DEFINED DISORDER
     Dosage: (100 MG), ORAL
     Route: 048
  2. BENZONATATE [Suspect]
     Indication: ILL-DEFINED DISORDER
     Dosage: (100 MG)
     Dates: start: 20050328
  3. FLUTICASONE PROPIONATE [Suspect]
     Indication: ILL-DEFINED DISORDER
     Dates: start: 20050328
  4. ALLEGRA D 24 HOUR [Suspect]
     Indication: ILL-DEFINED DISORDER
     Dates: start: 20050328
  5. CEFDINIR [Suspect]
     Indication: ILL-DEFINED DISORDER
     Dosage: (300 MG)
     Dates: start: 20050328
  6. HYDROCHLOROTHIAZIDE/OLMESARTAN [Concomitant]
  7. SIMVASTATIN [Concomitant]
  8. AMOXICILLIN [Concomitant]
  9. TUSSIN DM (DEXTROMETHORPHAN HYDROBROMIDE, GUAIFENESIN) [Concomitant]

REACTIONS (5)
  - CEREBROVASCULAR ACCIDENT [None]
  - CHRONIC SINUSITIS [None]
  - HEADACHE [None]
  - NECK PAIN [None]
  - VISUAL ACUITY REDUCED [None]
